FAERS Safety Report 13642642 (Version 2)
Quarter: 2017Q2

REPORT INFORMATION
  Report Type: Spontaneous
  Country: US (occurrence: US)
  Receive Date: 20170612
  Receipt Date: 20170620
  Transmission Date: 20170830
  Serious: Yes (Other)
  Sender: FDA-Public Use
  Company Number: US-AUROBINDO-AUR-APL-2017-35227

PATIENT
  Age: 30 Year
  Sex: Female

DRUGS (2)
  1. OXYCODONE [Suspect]
     Active Substance: OXYCODONE
     Dosage: 20 MG, DAILY
     Route: 065
  2. OXYCODONE [Suspect]
     Active Substance: OXYCODONE
     Indication: PAIN
     Dosage: 10 MG, EVERY 4 HOURS

REACTIONS (7)
  - Exposure during pregnancy [Unknown]
  - Drug use disorder [Recovered/Resolved]
  - Intentional product misuse [Recovered/Resolved]
  - Withdrawal syndrome [Recovered/Resolved]
  - Drug effect incomplete [Recovered/Resolved]
  - Anxiety [Recovered/Resolved]
  - Irritability [Recovered/Resolved]
